FAERS Safety Report 9832288 (Version 1)
Quarter: 2014Q1

REPORT INFORMATION
  Report Type: Spontaneous
  Country: DK (occurrence: GB)
  Receive Date: 20140121
  Receipt Date: 20140121
  Transmission Date: 20141002
  Serious: Yes (Other)
  Sender: FDA-Public Use
  Company Number: GB-FRI-1000052900

PATIENT
  Age: 65 Year
  Sex: Male
  Weight: 61 kg

DRUGS (5)
  1. CITALOPRAM [Suspect]
     Route: 048
     Dates: start: 20131216
  2. FLUTICASONE [Concomitant]
     Dates: start: 20130924
  3. SALBUTAMOL [Concomitant]
     Dates: start: 20130829, end: 20131122
  4. TEMAZEPAM [Concomitant]
     Dates: start: 20131230
  5. TIOTROPIUM [Concomitant]
     Dates: start: 20130924

REACTIONS (2)
  - Epilepsy [Recovered/Resolved]
  - Hyponatraemia [Recovered/Resolved]
